FAERS Safety Report 21083187 (Version 1)
Quarter: 2022Q3

REPORT INFORMATION
  Report Type: Spontaneous
  Country: JP (occurrence: JP)
  Receive Date: 20220714
  Receipt Date: 20220714
  Transmission Date: 20221026
  Serious: Yes (Hospitalization, Other)
  Sender: FDA-Public Use
  Company Number: JP-AMNEAL PHARMACEUTICALS-2022-AMRX-02062

PATIENT
  Age: 52 Year
  Sex: Male

DRUGS (6)
  1. ALYMSYS [Suspect]
     Active Substance: BEVACIZUMAB-MALY
     Indication: Metastases to lung
     Dosage: UNK
     Route: 065
  2. ALYMSYS [Suspect]
     Active Substance: BEVACIZUMAB-MALY
     Indication: Anal cancer
  3. ALYMSYS [Suspect]
     Active Substance: BEVACIZUMAB-MALY
     Indication: Rectal cancer stage I
  4. IRINOTECAN [Suspect]
     Active Substance: IRINOTECAN
     Indication: Metastases to lung
     Dosage: (4 COURSES), UNK
     Route: 065
  5. IRINOTECAN [Suspect]
     Active Substance: IRINOTECAN
     Indication: Anal cancer
  6. IRINOTECAN [Suspect]
     Active Substance: IRINOTECAN
     Indication: Rectal cancer stage I

REACTIONS (1)
  - Fournier^s gangrene [Unknown]
